FAERS Safety Report 10504102 (Version 2)
Quarter: 2014Q4

REPORT INFORMATION
  Report Type: Spontaneous
  Country: US (occurrence: US)
  Receive Date: 20141008
  Receipt Date: 20141008
  Transmission Date: 20150528
  Serious: No
  Sender: FDA-Public Use
  Company Number: US-BEH-2013038863

PATIENT
  Age: 61 Year
  Sex: Female
  Weight: 99 kg

DRUGS (1)
  1. PRIVIGEN [Suspect]
     Active Substance: HUMAN IMMUNOGLOBULIN G
     Indication: IMMUNODEFICIENCY COMMON VARIABLE
     Dates: start: 20130923

REACTIONS (6)
  - Herpes zoster [Recovered/Resolved]
  - Pain in extremity [Recovered/Resolved]
  - Musculoskeletal pain [Recovered/Resolved]
  - Pain in extremity [Recovered/Resolved]
  - Neck pain [Recovered/Resolved]
  - Nerve injury [Recovered/Resolved]

NARRATIVE: CASE EVENT DATE: 20130923
